FAERS Safety Report 8008385-4 (Version None)
Quarter: 2011Q4

REPORT INFORMATION
  Report Type: 
  Country: None (occurrence: None)
  Receive Date: 20111227
  Receipt Date: 20111220
  Transmission Date: 20120403
  Serious: Yes (Other)
  Sender: FDA-Public Use
  Company Number: US-ROCHE-785031

PATIENT
  Sex: Male
  Weight: 83.99 kg

DRUGS (2)
  1. ACCUTANE [Suspect]
     Indication: ACNE
  2. ACCUTANE [Suspect]
     Dates: start: 19980101, end: 19990101

REACTIONS (4)
  - EMOTIONAL DISTRESS [None]
  - IRRITABLE BOWEL SYNDROME [None]
  - COLITIS ULCERATIVE [None]
  - INFLAMMATORY BOWEL DISEASE [None]
